FAERS Safety Report 9069631 (Version 2)
Quarter: 2013Q1

REPORT INFORMATION
  Report Type: Spontaneous
  Country: US (occurrence: US)
  Receive Date: 20130215
  Receipt Date: 20130315
  Transmission Date: 20140127
  Serious: Yes (Other)
  Sender: FDA-Public Use
  Company Number: US-PFIZER INC-2013056259

PATIENT
  Age: 49 Year
  Sex: Male
  Weight: 81.6 kg

DRUGS (1)
  1. XYNTHA [Suspect]
     Indication: FACTOR VIII DEFICIENCY
     Dosage: 10 IU/KG, FOR ON-DEMAND USE PER INFUSION

REACTIONS (3)
  - Haemorrhage [Unknown]
  - Joint injury [Unknown]
  - Disease complication [Unknown]
